FAERS Safety Report 19511349 (Version 1)
Quarter: 2021Q3

REPORT INFORMATION
  Report Type: Spontaneous
  Country: US (occurrence: US)
  Receive Date: 20210709
  Receipt Date: 20210709
  Transmission Date: 20211014
  Serious: Yes (Other)
  Sender: FDA-Public Use
  Company Number: None

PATIENT
  Age: 46 Year
  Sex: Male

DRUGS (1)
  1. GENERIC BUPRENORPHINE/NALOXONE TABS [Suspect]
     Active Substance: BUPRENORPHINE\NALOXONE
     Indication: DRUG DEPENDENCE
     Route: 060
     Dates: start: 20210506

REACTIONS (3)
  - Pain in extremity [None]
  - Musculoskeletal disorder [None]
  - Peripheral swelling [None]

NARRATIVE: CASE EVENT DATE: 20210707
